FAERS Safety Report 7574614-4 (Version None)
Quarter: 2011Q2

REPORT INFORMATION
  Report Type: 
  Country: None (occurrence: None)
  Receive Date: 20110627
  Receipt Date: 20110620
  Transmission Date: 20111010
  Serious: Yes (Death)
  Sender: FDA-Public Use
  Company Number: PE-PFIZER INC-2011118921

PATIENT
  Age: 86 Year
  Sex: Female

DRUGS (3)
  1. DIAMICRON [Concomitant]
     Dosage: UNK
     Route: 048
  2. COZAAR [Concomitant]
     Dosage: UNK
     Route: 048
  3. XALATAN [Suspect]
     Indication: GLAUCOMA
     Dosage: 0.03 MG, 2X/DAY
     Route: 047

REACTIONS (1)
  - PNEUMONIA [None]
